FAERS Safety Report 14990738 (Version 1)
Quarter: 2018Q2

REPORT INFORMATION
  Report Type: Spontaneous
  Country: US (occurrence: US)
  Receive Date: 20180608
  Receipt Date: 20180608
  Transmission Date: 20180711
  Serious: Yes (Other)
  Sender: FDA-Public Use
  Company Number: US-TEVA-2018-US-901479

PATIENT
  Sex: Female

DRUGS (2)
  1. SPIRONOLACTONE. [Suspect]
     Active Substance: SPIRONOLACTONE
     Indication: CARDIAC DISORDER
  2. SPIRONOLACTONE. [Suspect]
     Active Substance: SPIRONOLACTONE
     Indication: FLUID IMBALANCE
     Route: 065

REACTIONS (10)
  - Electrolyte imbalance [Unknown]
  - Weight decreased [Unknown]
  - Wrong technique in product usage process [Unknown]
  - Eye disorder [Unknown]
  - Chills [Unknown]
  - Cardiac disorder [Unknown]
  - Renal disorder [Unknown]
  - Adverse drug reaction [Unknown]
  - Liver disorder [Unknown]
  - Migraine [Unknown]
